FAERS Safety Report 5407690-5 (Version None)
Quarter: 2007Q3

REPORT INFORMATION
  Report Type: 
  Country: None (occurrence: None)
  Receive Date: 20070803
  Receipt Date: 20070730
  Transmission Date: 20080115
  Serious: Yes (Disabling, Other)
  Sender: FDA-Public Use
  Company Number: THQ2007A00690

PATIENT
  Age: 84 Year
  Sex: Male

DRUGS (6)
  1. LUCRIN DEPOT 22.5 MG (LEUPROLIDE ACETATE) [Suspect]
     Indication: PROSTATE CANCER
     Dosage: 22.5 MG (22.5 MG, 1 IN 3 M) INTRAMUSCULAR
     Route: 030
  2. ASPIRIN [Concomitant]
  3. NICORANDIL [Concomitant]
  4. DIGOXIN [Concomitant]
  5. SOTALOL HYDROCHLORIDE [Concomitant]
  6. SIMVASTATIN [Concomitant]

REACTIONS (3)
  - MUSCLE HAEMORRHAGE [None]
  - MUSCLE MASS [None]
  - MUSCLE NECROSIS [None]
